FAERS Safety Report 4597377-3 (Version None)
Quarter: 2005Q1

REPORT INFORMATION
  Report Type: 
  Country: None (occurrence: None)
  Receive Date: 20050303
  Receipt Date: 20041011
  Transmission Date: 20050727
  Serious: Yes (Other)
  Sender: FDA-Public Use
  Company Number: US-GLAXOSMITHKLINE-A0529339A

PATIENT
  Age: 73 Year
  Sex: Male
  Weight: 97.7 kg

DRUGS (7)
  1. REQUIP [Suspect]
     Indication: PARKINSON'S DISEASE
     Dosage: 3MG SEE DOSAGE TEXT
     Route: 048
     Dates: start: 20040825
  2. AMANTADINE [Suspect]
     Indication: PARKINSONISM
     Dosage: 100MG IN THE MORNING
     Route: 048
     Dates: start: 20040825
  3. PROSCAR [Concomitant]
     Dosage: 5MG PER DAY
     Route: 048
  4. METAMUCIL-2 [Concomitant]
     Route: 048
  5. CORZIDE [Concomitant]
     Indication: HYPERTENSION
     Route: 048
  6. ZOCOR [Concomitant]
     Indication: BLOOD CHOLESTEROL INCREASED
     Dosage: 10MG PER DAY
     Route: 048
  7. CARDURA [Concomitant]
     Dosage: 4MG TWICE PER DAY
     Route: 048

REACTIONS (4)
  - CONSTIPATION [None]
  - MEDICATION ERROR [None]
  - NAUSEA [None]
  - VISION BLURRED [None]
